FAERS Safety Report 4950017-3 (Version None)
Quarter: 2006Q1

REPORT INFORMATION
  Report Type: 
  Country: None (occurrence: None)
  Receive Date: 20060315
  Receipt Date: 20060223
  Transmission Date: 20060701
  Serious: Yes (Hospitalization)
  Sender: FDA-Public Use
  Company Number: GB200601004674

PATIENT
  Age: 25 Year
  Sex: Male

DRUGS (2)
  1. CYMBALTA [Suspect]
     Indication: DEPRESSION
     Dosage: 60 MG,
     Dates: start: 20050101
  2. ANTIHISTAMINES [Concomitant]

REACTIONS (3)
  - DRUG ABUSER [None]
  - INCORRECT ROUTE OF DRUG ADMINISTRATION [None]
  - RHABDOMYOLYSIS [None]
